FAERS Safety Report 23774527 (Version 1)
Quarter: 2024Q2

REPORT INFORMATION
  Report Type: Spontaneous
  Country: US (occurrence: None)
  Receive Date: 20240423
  Receipt Date: 20240423
  Transmission Date: 20240716
  Serious: Yes (Hospitalization)
  Sender: FDA-Public Use
  Company Number: None

PATIENT
  Age: 74 Year
  Sex: Male

DRUGS (1)
  1. TRAMADOL HYDROCHLORIDE [Suspect]
     Active Substance: TRAMADOL HYDROCHLORIDE
     Indication: Atrial fibrillation
     Dosage: FREQUENCY : AS NEEDED;?
     Route: 048
     Dates: start: 20230329, end: 20230602

REACTIONS (2)
  - Atrial fibrillation [None]
  - Condition aggravated [None]

NARRATIVE: CASE EVENT DATE: 20230602
